FAERS Safety Report 4528331-5 (Version None)
Quarter: 2004Q4

REPORT INFORMATION
  Report Type: 
  Country: None (occurrence: None)
  Receive Date: 20041130
  Receipt Date: 20040809
  Transmission Date: 20050328
  Serious: No
  Sender: FDA-Public Use
  Company Number: WAES 0408USA00688

PATIENT
  Age: 80 Year
  Sex: Female
  Weight: 68.9467 kg

DRUGS (5)
  1. ZETIA [Suspect]
     Indication: HYPERCHOLESTEROLAEMIA
     Dosage: 10 MG DAILY PO
     Route: 048
     Dates: start: 20040201, end: 20040201
  2. ALTACE [Concomitant]
  3. CELEBREX [Concomitant]
  4. NORVASC [Concomitant]
  5. METFORMIN [Concomitant]

REACTIONS (2)
  - MUSCLE CRAMP [None]
  - MYALGIA [None]
